FAERS Safety Report 18252399 (Version 1)
Quarter: 2020Q3

REPORT INFORMATION
  Report Type: Spontaneous
  Country: US (occurrence: US)
  Receive Date: 20200910
  Receipt Date: 20200910
  Transmission Date: 20201103
  Serious: No
  Sender: FDA-Public Use
  Company Number: US-FARMAPROD-202007-0928

PATIENT
  Age: 80 Year
  Sex: Female

DRUGS (10)
  1. PREDNISOLONE/NEPAFENAC [Concomitant]
  2. DIGOXIN. [Concomitant]
     Active Substance: DIGOXIN
  3. COMBIGAN [Concomitant]
     Active Substance: BRIMONIDINE TARTRATE\TIMOLOL MALEATE
     Dosage: 0.2%?0.5%
  4. LOSARTAN POTASSIUM. [Concomitant]
     Active Substance: LOSARTAN POTASSIUM
  5. OXERVATE [Suspect]
     Active Substance: CENEGERMIN-BKBJ
     Indication: NEUROTROPHIC KERATOPATHY
     Route: 047
     Dates: start: 20200626
  6. CITRACAL [Concomitant]
     Active Substance: CALCIUM CITRATE
     Dosage: 250MG?200 MG
  7. LATANOPROST. [Concomitant]
     Active Substance: LATANOPROST
  8. MIRALAX [Concomitant]
     Active Substance: POLYETHYLENE GLYCOL 3350
  9. COREG [Concomitant]
     Active Substance: CARVEDILOL
  10. WARFARIN SODIUM. [Concomitant]
     Active Substance: WARFARIN SODIUM

REACTIONS (3)
  - Product dose omission issue [Unknown]
  - Product administration error [Unknown]
  - Overdose [Unknown]

NARRATIVE: CASE EVENT DATE: 20200701
